FAERS Safety Report 21140390 (Version 5)
Quarter: 2022Q4

REPORT INFORMATION
  Report Type: Report from Study
  Country: KR (occurrence: None)
  Receive Date: 20220728
  Receipt Date: 20221118
  Transmission Date: 20230112
  Serious: Yes (Hospitalization)
  Sender: FDA-Public Use
  Company Number: KR-ROCHE-3133685

PATIENT
  Age: 74 Year
  Sex: Male
  Weight: 84.3 kg

DRUGS (28)
  1. MOSUNETUZUMAB [Suspect]
     Active Substance: MOSUNETUZUMAB
     Indication: Diffuse large B-cell lymphoma
     Dosage: START DATE OF MOST RECENT DOSE OF STUDY DRUG PRIOR TO SAE 22-JUN-2022 AT 6:00 PM?DOSE LAST STUDY DRU
     Route: 058
     Dates: start: 20220531
  2. POLATUZUMAB VEDOTIN [Suspect]
     Active Substance: POLATUZUMAB VEDOTIN
     Indication: Diffuse large B-cell lymphoma
     Dosage: START DATE OF MOST RECENT DOSE OF STUDY DRUG PRIOR TO SAE 22-JUN-2022?DOSE LAST STUDY DRUG ADMIN PRI
     Route: 042
     Dates: start: 20220531
  3. TIRAMIDE [Concomitant]
     Route: 048
     Dates: start: 20220703, end: 20220706
  4. LINAGLIPTIN [Concomitant]
     Active Substance: LINAGLIPTIN
     Route: 048
  5. GLUCOPHAGE XR [Concomitant]
     Active Substance: METFORMIN HYDROCHLORIDE
     Route: 048
  6. LENOGRASTIM [Concomitant]
     Active Substance: LENOGRASTIM
     Route: 058
     Dates: start: 20220817, end: 20220817
  7. TACENOL 8HOURS ER [Concomitant]
     Route: 048
     Dates: start: 20220703, end: 20220705
  8. LOPAINE [Concomitant]
     Route: 048
     Dates: start: 20220703, end: 20220704
  9. CYCIN [Concomitant]
     Route: 048
     Dates: start: 20220703, end: 20220705
  10. ACETPHEN PREMIX [Concomitant]
     Route: 042
     Dates: start: 20220703, end: 20220703
  11. PANTOPRAZOLE SODIUM [Concomitant]
     Active Substance: PANTOPRAZOLE SODIUM
     Route: 042
     Dates: start: 20220703, end: 20220703
  12. MECKOOL [Concomitant]
     Route: 042
     Dates: start: 20220703, end: 20220703
  13. PROPACETAMOL HYDROCHLORIDE [Concomitant]
     Active Substance: PROPACETAMOL HYDROCHLORIDE
     Route: 042
     Dates: start: 20220705, end: 20220714
  14. PROPACETAMOL HYDROCHLORIDE [Concomitant]
     Active Substance: PROPACETAMOL HYDROCHLORIDE
     Route: 042
     Dates: start: 20220714, end: 20220801
  15. DULACKHAN EASY [Concomitant]
     Route: 048
     Dates: start: 20220706, end: 20220714
  16. SCD MAGNESIUM OXIDE [Concomitant]
     Route: 048
     Dates: start: 20220706, end: 20220712
  17. BORYUNG FLU [Concomitant]
     Route: 055
     Dates: start: 20220706, end: 20220712
  18. NAXEN F [Concomitant]
     Route: 048
     Dates: start: 20220707, end: 20220712
  19. TAZOPERAN [Concomitant]
     Route: 042
     Dates: start: 20220707, end: 20220721
  20. SULFAMETHOXAZOLE\TRIMETHOPRIM [Concomitant]
     Active Substance: SULFAMETHOXAZOLE\TRIMETHOPRIM
     Route: 042
     Dates: start: 20220710, end: 20220806
  21. PREDNISOLONE [Concomitant]
     Active Substance: PREDNISOLONE
     Route: 048
     Dates: start: 20220710, end: 20220714
  22. PREDNISOLONE [Concomitant]
     Active Substance: PREDNISOLONE
     Route: 048
     Dates: start: 20220716, end: 20220720
  23. PREDNISOLONE [Concomitant]
     Active Substance: PREDNISOLONE
     Route: 048
     Dates: start: 20220721, end: 20220725
  24. PREDNISOLONE [Concomitant]
     Active Substance: PREDNISOLONE
     Route: 048
     Dates: start: 20220726, end: 20220731
  25. PREDNISOLONE [Concomitant]
     Active Substance: PREDNISOLONE
     Route: 048
     Dates: start: 20220731, end: 20220805
  26. LEVOFLOXACIN [Concomitant]
     Active Substance: LEVOFLOXACIN
     Route: 042
     Dates: start: 20220712, end: 20220804
  27. AMARYL [Concomitant]
     Active Substance: GLIMEPIRIDE
     Route: 048
     Dates: start: 20220719, end: 20220722
  28. DONGA GASTER [Concomitant]
     Route: 048
     Dates: start: 20220714, end: 20220805

REACTIONS (4)
  - Cytomegalovirus infection [Recovered/Resolved]
  - Diarrhoea [Recovered/Resolved]
  - Cytokine release syndrome [Recovered/Resolved]
  - Pneumonitis [Recovered/Resolved]

NARRATIVE: CASE EVENT DATE: 20220703
